FAERS Safety Report 8335366-3 (Version None)
Quarter: 2012Q2

REPORT INFORMATION
  Report Type: 
  Country: None (occurrence: None)
  Receive Date: 20120503
  Receipt Date: 20120501
  Transmission Date: 20120825
  Serious: Yes (Death, Hospitalization)
  Sender: FDA-Public Use
  Company Number: AU-GILEAD-E2B_00001483

PATIENT
  Sex: Female

DRUGS (14)
  1. REVATIO [Suspect]
     Indication: PULMONARY ARTERIAL HYPERTENSION
     Route: 048
     Dates: start: 20101101, end: 20110821
  2. DESVENLAFAXINE SUCCINATE [Concomitant]
     Indication: DEPRESSION
     Route: 065
  3. LIPITOR [Concomitant]
     Indication: HYPERLIPIDAEMIA
     Route: 048
     Dates: start: 20080301, end: 20110821
  4. DIGOXIN [Concomitant]
     Indication: ATRIAL FIBRILLATION
     Route: 065
     Dates: start: 20080301, end: 20110821
  5. METFORMIN HCL [Concomitant]
     Indication: TYPE 2 DIABETES MELLITUS
     Route: 065
     Dates: start: 20080301, end: 20110821
  6. LASIX [Concomitant]
     Indication: POLYURIA
     Route: 048
     Dates: start: 20081001, end: 20110821
  7. ALDACTONE [Concomitant]
     Indication: HYPERTENSION
     Route: 065
     Dates: start: 20080301, end: 20110821
  8. SITAXSENTAN [Suspect]
     Indication: PULMONARY ARTERIAL HYPERTENSION
     Route: 048
     Dates: start: 20081101, end: 20101215
  9. ASPIRIN [Concomitant]
     Indication: ATRIAL FIBRILLATION
     Route: 048
     Dates: end: 20110821
  10. ATENOLOL [Concomitant]
     Indication: HYPERTENSION
     Route: 048
     Dates: start: 20080801, end: 20110821
  11. CHOLECALCIFEROL [Concomitant]
     Route: 065
  12. PRAMIPEXOLE DIHYDROCHLORIDE [Concomitant]
     Indication: MYOCLONUS
     Route: 065
     Dates: start: 20110113, end: 20110821
  13. AMBRISENTAN [Suspect]
     Indication: PULMONARY ARTERIAL HYPERTENSION
     Route: 048
     Dates: start: 20101220, end: 20110821
  14. PANTOPRAZOLE [Concomitant]
     Route: 065
     Dates: start: 20110712, end: 20110821

REACTIONS (9)
  - RENAL FAILURE [None]
  - ASTHENIA [None]
  - DIARRHOEA [None]
  - PANCREATITIS [None]
  - LETHARGY [None]
  - OEDEMA PERIPHERAL [None]
  - DYSPNOEA [None]
  - CARDIAC FAILURE [None]
  - ABDOMINAL PAIN [None]
